FAERS Safety Report 14375898 (Version 3)
Quarter: 2019Q3

REPORT INFORMATION
  Report Type: Spontaneous
  Country: IL (occurrence: IL)
  Receive Date: 20180111
  Receipt Date: 20190819
  Transmission Date: 20191004
  Serious: Yes (Hospitalization, Congenital Anomaly, Other)
  Sender: FDA-Public Use
  Company Number: IL-ABBVIE-18P-082-2218817-00

PATIENT
  Sex: Male

DRUGS (3)
  1. SODIUM VALPROATE [Suspect]
     Active Substance: VALPROATE SODIUM
     Indication: MATERNAL EXPOSURE TIMING UNSPECIFIED
     Route: 064
  2. PHENYTOIN. [Suspect]
     Active Substance: PHENYTOIN
     Indication: MATERNAL EXPOSURE TIMING UNSPECIFIED
     Route: 064
  3. PHENOBARBITAL. [Suspect]
     Active Substance: PHENOBARBITAL
     Indication: MATERNAL EXPOSURE TIMING UNSPECIFIED
     Route: 064

REACTIONS (14)
  - Growth retardation [Unknown]
  - Psychomotor skills impaired [Unknown]
  - Fontanelle bulging [Unknown]
  - Foetal exposure during pregnancy [Unknown]
  - Vitamin D decreased [Unknown]
  - Microcephaly [Unknown]
  - High arched palate [Unknown]
  - Finger deformity [Unknown]
  - Pilonidal cyst [Unknown]
  - Foetal anticonvulsant syndrome [Unknown]
  - Strabismus [Unknown]
  - Inguinal hernia [Unknown]
  - Cryptorchism [Unknown]
  - Ear malformation [Unknown]
